FAERS Safety Report 5416531-1 (Version None)
Quarter: 2007Q3

REPORT INFORMATION
  Report Type: 
  Country: None (occurrence: None)
  Receive Date: 20070815
  Receipt Date: 20070815
  Transmission Date: 20080115
  Serious: Yes (Other)
  Sender: FDA-Public Use
  Company Number: None

PATIENT
  Age: 2 Week
  Sex: Male
  Weight: 0.6 kg

DRUGS (1)
  1. NEOPROFEN [Suspect]
     Indication: PATENT DUCTUS ARTERIOSUS
     Dosage: 6.2 MG Q24H IV
     Route: 042
     Dates: start: 20070527, end: 20070529

REACTIONS (1)
  - RENAL FAILURE NEONATAL [None]
